FAERS Safety Report 6473075-6 (Version None)
Quarter: 2009Q4

REPORT INFORMATION
  Report Type: 
  Country: None (occurrence: None)
  Receive Date: 20091204
  Receipt Date: 20080422
  Transmission Date: 20100525
  Serious: Yes (Hospitalization, Other)
  Sender: FDA-Public Use
  Company Number: US-ELI_LILLY_AND_COMPANY-US200804005671

PATIENT
  Sex: Male

DRUGS (10)
  1. CYMBALTA [Suspect]
     Indication: DEPRESSION
     Dosage: 60 MG, UNK
     Dates: start: 20040901
  2. CYMBALTA [Suspect]
     Dosage: 30 MG, UNK
  3. CYMBALTA [Suspect]
     Dosage: 1/2 CONTENTS OF 30 MG CAPSULE
     Dates: end: 20080420
  4. LOTREL [Concomitant]
     Indication: HYPERTENSION
     Dosage: 10/40 MG
  5. GLIPIZIDE [Concomitant]
     Dosage: 2.5 MG, 2/D
  6. NEXIUM [Concomitant]
  7. AMBIEN [Concomitant]
     Indication: SLEEP DISORDER
     Dosage: 10 MG, UNK
  8. VITAMIN D [Concomitant]
  9. OXYCONTIN [Concomitant]
     Dosage: 40 MG, DAILY (1/D)
  10. FLEXERIL [Concomitant]

REACTIONS (10)
  - DISTURBANCE IN ATTENTION [None]
  - HEADACHE [None]
  - HYPERADRENALISM [None]
  - HYPERPARATHYROIDISM [None]
  - HYPERTENSION [None]
  - INSOMNIA [None]
  - INTERVERTEBRAL DISC OPERATION [None]
  - METABOLIC SYNDROME [None]
  - NAUSEA [None]
  - TINNITUS [None]
